FAERS Safety Report 24149783 (Version 1)
Quarter: 2024Q3

REPORT INFORMATION
  Report Type: Spontaneous
  Country: DE (occurrence: DE)
  Receive Date: 20240730
  Receipt Date: 20240730
  Transmission Date: 20241017
  Serious: No
  Sender: ALKEM
  Company Number: None

PATIENT
  Age: 71 Year
  Sex: Female
  Weight: 60 kg

DRUGS (1)
  1. CEFUROXIME AXETIL [Suspect]
     Active Substance: CEFUROXIME AXETIL
     Indication: Bronchitis
     Dosage: 250 MILLIGRAM, BID (EVERY 0.5 DAY)
     Route: 048
     Dates: start: 20231211, end: 20231217

REACTIONS (4)
  - Pustule [Not Recovered/Not Resolved]
  - Rash macular [Not Recovered/Not Resolved]
  - Rash maculo-papular [Not Recovered/Not Resolved]
  - Pruritus [Recovered/Resolved]

NARRATIVE: CASE EVENT DATE: 20231212
